FAERS Safety Report 19000902 (Version 1)
Quarter: 2021Q1

REPORT INFORMATION
  Report Type: Spontaneous
  Country: DK (occurrence: DK)
  Receive Date: 20210311
  Receipt Date: 20210311
  Transmission Date: 20210420
  Serious: Yes (Life-Threatening, Hospitalization)
  Sender: FDA-Public Use
  Company Number: DK-JNJFOC-20210317765

PATIENT
  Age: 63 Year
  Sex: Female
  Weight: 83 kg

DRUGS (4)
  1. XEPLION [Suspect]
     Active Substance: PALIPERIDONE PALMITATE
  2. XEPLION [Suspect]
     Active Substance: PALIPERIDONE PALMITATE
     Indication: BIPOLAR DISORDER
     Route: 030
     Dates: start: 2016, end: 202102
  3. XEPLION [Suspect]
     Active Substance: PALIPERIDONE PALMITATE
  4. CHAMPIX [Concomitant]
     Active Substance: VARENICLINE TARTRATE
     Indication: SMOKING CESSATION THERAPY
     Route: 048
     Dates: start: 20210113

REACTIONS (7)
  - Mutism [Recovering/Resolving]
  - Opisthotonus [Recovering/Resolving]
  - Product use in unapproved indication [Unknown]
  - Rapid-onset dystonia-parkinsonism [Recovering/Resolving]
  - Apathy [Recovering/Resolving]
  - Off label use [Unknown]
  - Muscle rigidity [Recovering/Resolving]

NARRATIVE: CASE EVENT DATE: 2016
